FAERS Safety Report 18991180 (Version 3)
Quarter: 2021Q1

REPORT INFORMATION
  Report Type: Spontaneous
  Country: CH (occurrence: CH)
  Receive Date: 20210310
  Receipt Date: 20210329
  Transmission Date: 20210420
  Serious: Yes (Hospitalization)
  Sender: FDA-Public Use
  Company Number: CH-CELGENEUS-CHE-20210301578

PATIENT
  Age: 74 Year
  Sex: Male
  Weight: 64 kg

DRUGS (4)
  1. DEXAMETHASONE. [Concomitant]
     Active Substance: DEXAMETHASONE
     Indication: PLASMA CELL MYELOMA
     Route: 041
     Dates: start: 201909
  2. DEXAMETHASONE. [Concomitant]
     Active Substance: DEXAMETHASONE
     Indication: MYELOMA CAST NEPHROPATHY
     Route: 041
     Dates: start: 202009, end: 202102
  3. POMALIDOMIDE [Suspect]
     Active Substance: POMALIDOMIDE
     Indication: PLASMA CELL MYELOMA
     Route: 048
     Dates: start: 201909
  4. POMALIDOMIDE [Suspect]
     Active Substance: POMALIDOMIDE
     Route: 048
     Dates: start: 202009, end: 20210219

REACTIONS (4)
  - Pancytopenia [Recovered/Resolved]
  - Acute kidney injury [Recovered/Resolved]
  - Febrile neutropenia [Recovered/Resolved]
  - Monoclonal gammopathy [Recovered/Resolved]

NARRATIVE: CASE EVENT DATE: 202102
